FAERS Safety Report 5278654-X (Version None)
Quarter: 2007Q1

REPORT INFORMATION
  Report Type: 
  Country: None (occurrence: None)
  Receive Date: 20061213
  Receipt Date: 20050513
  Transmission Date: 20070707
  Serious: No
  Sender: FDA-Public Use
  Company Number: 2005UW07448

PATIENT
  Age: 5 Year
  Sex: Male
  Weight: 24.493 kg

DRUGS (3)
  1. SEROQUEL [Suspect]
     Indication: AGGRESSION
     Dosage: 1130 MG DAILY PO
     Route: 048
  2. SEROQUEL [Suspect]
     Indication: BIPOLAR DISORDER
     Dosage: 1130 MG DAILY PO
     Route: 048
  3. TRILEPTAL [Concomitant]

REACTIONS (3)
  - LETHARGY [None]
  - PRESCRIBED OVERDOSE [None]
  - SOMNOLENCE [None]
